FAERS Safety Report 16997163 (Version 1)
Quarter: 2019Q4

REPORT INFORMATION
  Report Type: Spontaneous
  Country: US (occurrence: US)
  Receive Date: 20190924
  Receipt Date: 20190924
  Transmission Date: 20200122
  Serious: No
  Sender: FDA-Public Use
  Company Number: None

PATIENT

DRUGS (2)
  1. ETOMIDATE. [Suspect]
     Active Substance: ETOMIDATE
  2. INVANZ [Suspect]
     Active Substance: ERTAPENEM SODIUM

REACTIONS (3)
  - Product appearance confusion [None]
  - Product name confusion [None]
  - Intercepted product dispensing error [None]
